FAERS Safety Report 15545076 (Version 1)
Quarter: 2018Q4

REPORT INFORMATION
  Report Type: Spontaneous
  Country: US (occurrence: US)
  Receive Date: 20181024
  Receipt Date: 20181024
  Transmission Date: 20190205
  Serious: No
  Sender: FDA-Public Use
  Company Number: US-BAYER-2018-197386

PATIENT
  Age: 49 Year
  Sex: Female

DRUGS (1)
  1. ULTRAVIST [Suspect]
     Active Substance: IOPROMIDE
     Dosage: 100 ML, ONCE
     Route: 042
     Dates: start: 20181019, end: 20181019

REACTIONS (4)
  - Hypoaesthesia [None]
  - Throat irritation [None]
  - Lip swelling [None]
  - Chills [None]

NARRATIVE: CASE EVENT DATE: 20181019
